FAERS Safety Report 17664035 (Version 1)
Quarter: 2020Q2

REPORT INFORMATION
  Report Type: Spontaneous
  Country: FR (occurrence: FR)
  Receive Date: 20200414
  Receipt Date: 20200414
  Transmission Date: 20200713
  Serious: Yes (Other)
  Sender: FDA-Public Use
  Company Number: FR-ROCHE-2582876

PATIENT
  Age: 59 Year
  Sex: Male

DRUGS (5)
  1. ACETYLSALICYLIC ACID [Concomitant]
     Active Substance: ASPIRIN
     Indication: ANTIPLATELET THERAPY
     Route: 065
  2. VALGANCICLOVIR. [Suspect]
     Active Substance: VALGANCICLOVIR
     Indication: VARICELLA ZOSTER VIRUS INFECTION
     Route: 048
  3. FOSCARNET [Suspect]
     Active Substance: FOSCARNET
     Indication: VARICELLA ZOSTER VIRUS INFECTION
     Route: 042
  4. GANCICLOVIR. [Suspect]
     Active Substance: GANCICLOVIR
     Indication: VARICELLA ZOSTER VIRUS INFECTION
     Dosage: (4 INJECTIONS, 2000 MICROG/0.05 ML)
     Route: 031
  5. ACICLOVIR [Suspect]
     Active Substance: ACYCLOVIR
     Indication: VARICELLA ZOSTER VIRUS INFECTION
     Dosage: 10 MG/KG FOR 8 HOURS
     Route: 042

REACTIONS (3)
  - Macular fibrosis [Unknown]
  - Off label use [Unknown]
  - Intentional product use issue [Unknown]
